FAERS Safety Report 7458621-8 (Version None)
Quarter: 2011Q2

REPORT INFORMATION
  Report Type: 
  Country: None (occurrence: None)
  Receive Date: 20110504
  Receipt Date: 20110421
  Transmission Date: 20111010
  Serious: Yes (Disabling)
  Sender: FDA-Public Use
  Company Number: PT-ELI_LILLY_AND_COMPANY-PT201104002986

PATIENT
  Age: 31 Year
  Sex: Male

DRUGS (2)
  1. CYMBALTA [Suspect]
     Dosage: 30 MG, QD
     Dates: start: 20110324, end: 20110407
  2. CYMBALTA [Suspect]
     Indication: DEPRESSION
     Dosage: 60 MG, QD
     Route: 048
     Dates: start: 20100801, end: 20110301

REACTIONS (9)
  - VERTIGO [None]
  - DRUG WITHDRAWAL SYNDROME [None]
  - VISUAL IMPAIRMENT [None]
  - PARAESTHESIA [None]
  - DIZZINESS [None]
  - NAUSEA [None]
  - HEADACHE [None]
  - HYPERHIDROSIS [None]
  - DISABILITY [None]
